FAERS Safety Report 6309626-1 (Version None)
Quarter: 2009Q3

REPORT INFORMATION
  Report Type: 
  Country: None (occurrence: None)
  Receive Date: 20090814
  Receipt Date: 20090812
  Transmission Date: 20100115
  Serious: Yes (Other)
  Sender: FDA-Public Use
  Company Number: GB-BRISTOL-MYERS SQUIBB COMPANY-14703862

PATIENT
  Age: 21 Year
  Sex: Female

DRUGS (2)
  1. ABILIFY [Suspect]
     Indication: PSYCHOTIC DISORDER
     Route: 048
     Dates: start: 20090710, end: 20090723
  2. PROPRANOLOL [Concomitant]

REACTIONS (4)
  - EMOTIONAL DISORDER [None]
  - MASKED FACIES [None]
  - MUSCULOSKELETAL STIFFNESS [None]
  - RESTLESSNESS [None]
